FAERS Safety Report 24112283 (Version 1)
Quarter: 2024Q3

REPORT INFORMATION
  Report Type: Report from Study
  Country: GB (occurrence: GB)
  Receive Date: 20240719
  Receipt Date: 20240719
  Transmission Date: 20241017
  Serious: Yes (Disabling)
  Sender: JOHNSON AND JOHNSON
  Company Number: GB-JNJFOC-20240700636

PATIENT
  Age: 63 Year
  Sex: Female
  Weight: 65.6 kg

DRUGS (2)
  1. ERDAFITINIB [Suspect]
     Active Substance: ERDAFITINIB
     Indication: Transitional cell carcinoma
     Route: 048
     Dates: start: 20240312, end: 20240607
  2. DENOSUMAB [Concomitant]
     Active Substance: DENOSUMAB
     Indication: Transitional cell carcinoma
     Route: 058
     Dates: start: 20221128

REACTIONS (3)
  - Oral pain [Recovered/Resolved]
  - Skin exfoliation [Recovered/Resolved]
  - Mucosal inflammation [Recovered/Resolved]

NARRATIVE: CASE EVENT DATE: 20240611
